FAERS Safety Report 10993420 (Version 2)
Quarter: 2016Q1

REPORT INFORMATION
  Report Type: Report from Study
  Country: US (occurrence: US)
  Receive Date: 20150407
  Receipt Date: 20160315
  Transmission Date: 20160525
  Serious: No
  Sender: FDA-Public Use
  Company Number: US-AMGEN-USASP2015033009

PATIENT
  Age: 71 Year
  Sex: Female

DRUGS (1)
  1. ENBREL [Suspect]
     Active Substance: ETANERCEPT
     Indication: PSORIATIC ARTHROPATHY
     Dosage: 50 MG, WEEKLY
     Route: 065

REACTIONS (3)
  - Pain [Unknown]
  - Nasopharyngitis [Not Recovered/Not Resolved]
  - Spinal disorder [Unknown]

NARRATIVE: CASE EVENT DATE: 201503
